FAERS Safety Report 7134913-7 (Version None)
Quarter: 2010Q4

REPORT INFORMATION
  Report Type: 
  Country: None (occurrence: None)
  Receive Date: 20101203
  Receipt Date: 20101122
  Transmission Date: 20110411
  Serious: Yes (Hospitalization)
  Sender: FDA-Public Use
  Company Number: JP-JNJFOC-20101001000

PATIENT
  Sex: Female
  Weight: 53 kg

DRUGS (13)
  1. REMICADE [Suspect]
     Indication: RHEUMATOID ARTHRITIS
     Dosage: 3 INFUSIONS AT 3 MG/KG
     Route: 042
  2. REMICADE [Suspect]
     Dosage: 3 INFUSIONS AT 6 MG/KG  6 INFUSIONS TOTAL
     Route: 042
  3. METHOTREXATE [Concomitant]
     Indication: RHEUMATOID ARTHRITIS
     Route: 048
  4. METHOTREXATE [Concomitant]
     Route: 048
  5. RHEUMATREX [Concomitant]
     Indication: RHEUMATOID ARTHRITIS
     Route: 048
  6. CELECOXIB [Concomitant]
     Route: 048
  7. FASTIC [Concomitant]
     Route: 048
  8. ACTEMRA [Concomitant]
     Indication: SAPHO SYNDROME
  9. ACTEMRA [Concomitant]
  10. ACTEMRA [Concomitant]
     Indication: RHEUMATOID ARTHRITIS
  11. ACTEMRA [Concomitant]
  12. MUCOSTA [Concomitant]
     Route: 048
  13. BASEN [Concomitant]
     Route: 048

REACTIONS (1)
  - SAPHO SYNDROME [None]
